FAERS Safety Report 11220948 (Version 1)
Quarter: 2015Q2

REPORT INFORMATION
  Report Type: Spontaneous
  Country: ES (occurrence: ES)
  Receive Date: 20150626
  Receipt Date: 20150626
  Transmission Date: 20150821
  Serious: Yes (Death, Hospitalization, Other)
  Sender: FDA-Public Use
  Company Number: ES-009507513-0309USA01976

PATIENT

DRUGS (5)
  1. IDALPREM [Suspect]
     Active Substance: LORAZEPAM
     Dates: start: 20030619, end: 20030627
  2. VANDRAL [Suspect]
     Active Substance: VENLAFAXINE HYDROCHLORIDE
     Dosage: 300 MG, QD
     Route: 048
     Dates: start: 20030619, end: 20030627
  3. ZYPREXA [Suspect]
     Active Substance: OLANZAPINE
     Dosage: 20 MG, QD
     Route: 048
     Dates: start: 20030619, end: 20030627
  4. SINEMET PLUS 25/100 MG (IR) [Suspect]
     Active Substance: CARBIDOPA\LEVODOPA
     Dosage: 3 DF, QD
     Route: 048
  5. REXER [Suspect]
     Active Substance: MIRTAZAPINE
     Dosage: 30 MG, QD
     Route: 048
     Dates: start: 20030619, end: 20030627

REACTIONS (1)
  - Neuroleptic malignant syndrome [Fatal]

NARRATIVE: CASE EVENT DATE: 20030627
